FAERS Safety Report 8360686-6 (Version None)
Quarter: 2012Q2

REPORT INFORMATION
  Report Type: 
  Country: None (occurrence: None)
  Receive Date: 20120515
  Receipt Date: 20120420
  Transmission Date: 20120825
  Serious: Yes (Death, Hospitalization, Other)
  Sender: FDA-Public Use
  Company Number: US-ACTELION-A-NJ2012-61240

PATIENT

DRUGS (9)
  1. AMIODARONE HCL [Concomitant]
  2. CARDIAZEM [Concomitant]
  3. NEPHROCAPS [Concomitant]
  4. SENSIPAR [Concomitant]
  5. SILDENAFIL [Concomitant]
  6. RENAGEL [Concomitant]
  7. TRACLEER [Suspect]
     Indication: PULMONARY ARTERIAL HYPERTENSION
     Dosage: UNK
     Route: 048
     Dates: start: 20120131
  8. COUMADIN [Concomitant]
  9. EPOPROSTENOL SODIUM [Suspect]
     Indication: PULMONARY ARTERIAL HYPERTENSION
     Dosage: 22.5 NG/KG, PER MIN
     Route: 041
     Dates: start: 20111014, end: 20120219

REACTIONS (7)
  - RESUSCITATION [None]
  - CONDITION AGGRAVATED [None]
  - ENDOTRACHEAL INTUBATION [None]
  - NEPHROPATHY [None]
  - PULMONARY ARTERIAL HYPERTENSION [None]
  - CARDIO-RESPIRATORY ARREST [None]
  - HYPOTENSION [None]
